FAERS Safety Report 21766930 (Version 1)
Quarter: 2022Q4

REPORT INFORMATION
  Report Type: Report from Study
  Country: US (occurrence: None)
  Receive Date: 20221222
  Receipt Date: 20221222
  Transmission Date: 20230113
  Serious: Yes (Other)
  Sender: FDA-Public Use
  Company Number: US-ROCHE-2715391

PATIENT
  Age: 74 Year
  Sex: Female
  Weight: 58.2 kg

DRUGS (1)
  1. ADO-TRASTUZUMAB EMTANSINE [Suspect]
     Active Substance: ADO-TRASTUZUMAB EMTANSINE
     Indication: Breast cancer
     Dosage: 210 MG, 17 CYCLES EVERY 21 DAYS
     Route: 042
     Dates: start: 20190320, end: 20200218

REACTIONS (1)
  - Cardiac aneurysm [Unknown]

NARRATIVE: CASE EVENT DATE: 20190523
